FAERS Safety Report 20437787 (Version 1)
Quarter: 2022Q1

REPORT INFORMATION
  Report Type: Spontaneous
  Country: BE (occurrence: BE)
  Receive Date: 20220207
  Receipt Date: 20220207
  Transmission Date: 20220423
  Serious: Yes (Other)
  Sender: FDA-Public Use
  Company Number: BE-VIIV HEALTHCARE ULC-BE2022EME018346

PATIENT
  Sex: Female

DRUGS (1)
  1. VOCABRIA [Suspect]
     Active Substance: CABOTEGRAVIR SODIUM
     Indication: Product used for unknown indication
     Dosage: UNK

REACTIONS (5)
  - Syncope [Unknown]
  - Chest pain [Unknown]
  - Hyperhidrosis [Unknown]
  - Vomiting [Unknown]
  - Blood pressure abnormal [Unknown]
